FAERS Safety Report 5408184-3 (Version None)
Quarter: 2007Q3

REPORT INFORMATION
  Report Type: 
  Country: None (occurrence: None)
  Receive Date: 20070808
  Receipt Date: 20070801
  Transmission Date: 20080115
  Serious: Yes (Other)
  Sender: FDA-Public Use
  Company Number: JP-ASTRAZENECA-2007AP02081

PATIENT
  Age: 26341 Day
  Sex: Female
  Weight: 54 kg

DRUGS (9)
  1. CRESTOR [Suspect]
     Indication: HYPERLIPIDAEMIA
     Route: 048
     Dates: start: 20070131, end: 20070207
  2. CRESTOR [Suspect]
     Route: 048
     Dates: start: 20070209, end: 20070215
  3. LANSOPRAZOLE [Concomitant]
     Route: 048
     Dates: start: 20060101
  4. MUCOSTA [Concomitant]
     Route: 048
     Dates: start: 20060101
  5. TOUGHMAC E [Concomitant]
     Route: 048
     Dates: start: 20060101
  6. LOXONIN [Concomitant]
     Route: 048
     Dates: start: 20060101
  7. DEPAS [Concomitant]
     Route: 048
     Dates: start: 20060101
  8. EPADEL S [Concomitant]
     Route: 048
     Dates: start: 20061023
  9. LIVALO [Concomitant]

REACTIONS (3)
  - ATRIAL FIBRILLATION [None]
  - HYPOAESTHESIA [None]
  - PARAESTHESIA ORAL [None]
